FAERS Safety Report 8724663 (Version 3)
Quarter: 2012Q4

REPORT INFORMATION
  Report Type: 
  Country: JP (occurrence: JP)
  Receive Date: 20120815
  Receipt Date: 20121005
  Transmission Date: 20130627
  Serious: Yes (Hospitalization)
  Sender: FDA-Public Use
  Company Number: JP-B.I. PHARMACEUTICALS,INC./RIDGEFIELD-2012-BP-17851NB

PATIENT
  Age: 86 Year
  Sex: Male
  Weight: 68.2 kg

DRUGS (5)
  1. PRAZAXA [Suspect]
     Indication: ATRIAL FIBRILLATION
     Dosage: 220 mg
     Route: 048
     Dates: start: 20120411, end: 20120807
  2. OLMETEC [Concomitant]
     Indication: HYPERTENSION
     Route: 065
  3. AMLODIN [Concomitant]
     Dosage: 2.5 mg
     Route: 065
  4. SELARA [Concomitant]
     Dosage: 25 mg
     Route: 065
  5. OMEPRAZON [Concomitant]
     Route: 065

REACTIONS (1)
  - Cerebral infarction [Recovered/Resolved]
